FAERS Safety Report 14659516 (Version 1)
Quarter: 2018Q1

REPORT INFORMATION
  Report Type: Spontaneous
  Country: US (occurrence: US)
  Receive Date: 20180319
  Receipt Date: 20180319
  Transmission Date: 20180509
  Serious: Yes (Other)
  Sender: FDA-Public Use
  Company Number: None

PATIENT
  Sex: Male

DRUGS (1)
  1. AMOXICILLIN\CLAVULANATE POTASSIUM [Suspect]
     Active Substance: AMOXICILLIN\CLAVULANATE POTASSIUM
     Indication: PNEUMONIA
     Dosage: FREQUENCY: TWICE A DAY FOR 4 DAYS
     Route: 048
     Dates: start: 20180224, end: 20180228

REACTIONS (2)
  - Drug dispensing error [None]
  - Product packaging quantity issue [None]

NARRATIVE: CASE EVENT DATE: 20180224
